FAERS Safety Report 5053434-9 (Version None)
Quarter: 2006Q3

REPORT INFORMATION
  Report Type: 
  Country: None (occurrence: None)
  Receive Date: 20060712
  Receipt Date: 20060629
  Transmission Date: 20061208
  Serious: Yes (Hospitalization)
  Sender: FDA-Public Use
  Company Number: 226895

PATIENT
  Age: 56 Year
  Sex: Male
  Weight: 85 kg

DRUGS (1)
  1. MABTHERA (RITUXIMAB) CONC FOR SOLUTION FOR INFUSION [Suspect]
     Indication: DRUG USE FOR UNKNOWN INDICATION

REACTIONS (1)
  - ACUTE CORONARY SYNDROME [None]
